FAERS Safety Report 6223329-3 (Version None)
Quarter: 2009Q2

REPORT INFORMATION
  Report Type: 
  Country: None (occurrence: None)
  Receive Date: 20090611
  Receipt Date: 20090605
  Transmission Date: 20091009
  Serious: Yes (Life-Threatening, Hospitalization)
  Sender: FDA-Public Use
  Company Number: FR-ELI_LILLY_AND_COMPANY-FR200906001435

PATIENT
  Age: 58 Year
  Sex: Male

DRUGS (2)
  1. GEMZAR [Suspect]
     Route: 042
     Dates: start: 20081124, end: 20081201
  2. GEMZAR [Suspect]
     Dosage: UNK, UNK
     Route: 042
     Dates: start: 20090205, end: 20090201

REACTIONS (2)
  - HEPATIC ENCEPHALOPATHY [None]
  - HEPATIC FAILURE [None]
